FAERS Safety Report 9679531 (Version 1)
Quarter: 2013Q4

REPORT INFORMATION
  Report Type: Spontaneous
  Country: US (occurrence: US)
  Receive Date: 20131109
  Receipt Date: 20131109
  Transmission Date: 20140711
  Serious: No
  Sender: FDA-Public Use
  Company Number: US-SANOFI-AVENTIS-2013SA079137

PATIENT
  Age: 57 Year
  Sex: Female
  Weight: 74.84 kg

DRUGS (5)
  1. ALLEGRA-D [Suspect]
     Route: 048
  2. FLUTICASONE [Concomitant]
     Indication: HYPERSENSITIVITY
  3. CALCIUM PHOSPHATE/CALCIUM SODIUM LACTATE/ERGOCALCIFEROL [Concomitant]
  4. ZOMIG [Concomitant]
     Indication: MIGRAINE
  5. PATANOL [Concomitant]
     Indication: HYPERSENSITIVITY

REACTIONS (1)
  - Drug ineffective [Unknown]
